FAERS Safety Report 17923973 (Version 1)
Quarter: 2020Q2

REPORT INFORMATION
  Report Type: Spontaneous
  Country: GB (occurrence: GB)
  Receive Date: 20200622
  Receipt Date: 20200622
  Transmission Date: 20200714
  Serious: Yes (Other)
  Sender: FDA-Public Use
  Company Number: GB-JNJFOC-20180407172

PATIENT

DRUGS (2)
  1. REMICADE [Suspect]
     Active Substance: INFLIXIMAB
     Indication: CROHN^S DISEASE
     Route: 042
  2. REMICADE [Suspect]
     Active Substance: INFLIXIMAB
     Indication: COLITIS ULCERATIVE

REACTIONS (12)
  - Subcutaneous abscess [Unknown]
  - Pruritus [Unknown]
  - Cellulitis [Unknown]
  - Lichen planus [Unknown]
  - Herpes zoster [Unknown]
  - Acne [Unknown]
  - Urticaria [Unknown]
  - Seborrhoeic dermatitis [Unknown]
  - Psoriasis [Unknown]
  - Eczema [Unknown]
  - Rash [Unknown]
  - Varicella [Unknown]
